FAERS Safety Report 14545762 (Version 2)
Quarter: 2018Q1

REPORT INFORMATION
  Report Type: Spontaneous
  Country: US (occurrence: US)
  Receive Date: 20180219
  Receipt Date: 20180316
  Transmission Date: 20180509
  Serious: No
  Sender: FDA-Public Use
  Company Number: US-CELGENEUS-USA-20180205634

PATIENT
  Sex: Female
  Weight: 57.66 kg

DRUGS (3)
  1. REVLIMID [Suspect]
     Active Substance: LENALIDOMIDE
     Indication: PLASMA CELL MYELOMA
     Dosage: 15 MILLIGRAM
     Route: 048
     Dates: start: 201706
  2. REVLIMID [Suspect]
     Active Substance: LENALIDOMIDE
     Dosage: 20 MILLIGRAM
     Route: 048
     Dates: start: 201712
  3. REVLIMID [Suspect]
     Active Substance: LENALIDOMIDE
     Dosage: 15MILLIGRAM
     Route: 048
     Dates: start: 201803

REACTIONS (2)
  - Laboratory test abnormal [Unknown]
  - Plasma cell myeloma [Unknown]
